FAERS Safety Report 5501974-8 (Version None)
Quarter: 2007Q4

REPORT INFORMATION
  Report Type: 
  Country: None (occurrence: None)
  Receive Date: 20071030
  Receipt Date: 20071024
  Transmission Date: 20080405
  Serious: Yes (Other)
  Sender: FDA-Public Use
  Company Number: A0679715A

PATIENT
  Age: 78 Year
  Sex: Male

DRUGS (2)
  1. AVODART [Suspect]
     Indication: BENIGN PROSTATIC HYPERPLASIA
     Dosage: .5MG PER DAY
     Route: 048
     Dates: start: 20050201, end: 20070101
  2. FLOMAX [Concomitant]

REACTIONS (3)
  - BREAST MASS [None]
  - GYNAECOMASTIA [None]
  - MAMMOGRAM ABNORMAL [None]
